FAERS Safety Report 7852035-4 (Version None)
Quarter: 2011Q3

REPORT INFORMATION
  Report Type: 
  Country: None (occurrence: None)
  Receive Date: 20110906
  Receipt Date: 20110719
  Transmission Date: 20111222
  Serious: No
  Sender: FDA-Public Use
  Company Number: 201106006

PATIENT
  Age: 88 Year
  Sex: Male

DRUGS (12)
  1. LISINOPRIL [Concomitant]
  2. MELATONIN (MELATONIN) [Concomitant]
  3. CELEXA [Concomitant]
  4. PRILOSEC [Concomitant]
  5. LOPRESSOR [Concomitant]
  6. NEURONTIN [Concomitant]
  7. XIAFLEX [Suspect]
     Indication: DUPUYTREN'S CONTRACTURE
     Dosage: 0.58 MG, 1 IN 1 D, INTRALESIONAL ; 1 IN 1 D, INTRALESIONAL
     Route: 026
     Dates: start: 20110531, end: 20110531
  8. XIAFLEX [Suspect]
     Indication: DUPUYTREN'S CONTRACTURE
     Dosage: 0.58 MG, 1 IN 1 D, INTRALESIONAL ; 1 IN 1 D, INTRALESIONAL
     Route: 026
     Dates: start: 20110426, end: 20110426
  9. XANAX [Concomitant]
  10. AGGRENOX (ACETYLSALICYLIC ACID) [Concomitant]
  11. PRAVASTATIN [Concomitant]
  12. VITAMIN (ERGOCALCIFEROL) [Concomitant]

REACTIONS (1)
  - LACERATION [None]
